FAERS Safety Report 5854364-2 (Version None)
Quarter: 2008Q3

REPORT INFORMATION
  Report Type: 
  Country: None (occurrence: None)
  Receive Date: 20080822
  Receipt Date: 20080820
  Transmission Date: 20090109
  Serious: No
  Sender: FDA-Public Use
  Company Number: US-BOEHRINGER INGELHEIM GMBH, GERMANY-2008-BP-07877BP

PATIENT
  Sex: Female

DRUGS (10)
  1. SPIRIVA [Suspect]
     Indication: CHRONIC OBSTRUCTIVE PULMONARY DISEASE
     Route: 055
     Dates: start: 20050101
  2. SPIRIVA [Suspect]
     Indication: ASTHMA
  3. LIPITOR [Concomitant]
     Indication: BLOOD CHOLESTEROL INCREASED
  4. METOPROLOL [Concomitant]
     Indication: HYPERTENSION
     Route: 048
  5. ATICAND HCT [Concomitant]
     Indication: HYPERTENSION
  6. NORVASC [Concomitant]
     Indication: HYPERTENSION
  7. SEREVENT [Concomitant]
  8. FOSAMAX [Concomitant]
  9. PLAVIX [Concomitant]
  10. MIACALCIN [Concomitant]
     Route: 045

REACTIONS (1)
  - DYSPNOEA [None]
